FAERS Safety Report 7345352-8 (Version None)
Quarter: 2011Q1

REPORT INFORMATION
  Report Type: 
  Country: None (occurrence: None)
  Receive Date: 20110310
  Receipt Date: 20110308
  Transmission Date: 20110831
  Serious: Yes (Other)
  Sender: FDA-Public Use
  Company Number: JP-PFIZER INC-2011051007

PATIENT
  Age: 68 Year
  Sex: Male

DRUGS (6)
  1. DIOVAN [Concomitant]
     Dosage: UNK
  2. ASPIRIN [Concomitant]
     Dosage: UNK
  3. CRESTOR [Concomitant]
     Dosage: UNK
  4. CHAMPIX [Suspect]
     Indication: SMOKING CESSATION THERAPY
     Dosage: UNK
     Route: 048
     Dates: start: 20100801, end: 20100906
  5. SUNRYTHM [Concomitant]
     Dosage: UNK
  6. NORVASC [Concomitant]
     Dosage: UNK

REACTIONS (4)
  - DYSGEUSIA [None]
  - OEDEMA MOUTH [None]
  - HYPOAESTHESIA ORAL [None]
  - CHOKING SENSATION [None]
